FAERS Safety Report 23471380 (Version 1)
Quarter: 2024Q1

REPORT INFORMATION
  Report Type: Spontaneous
  Country: SK (occurrence: SK)
  Receive Date: 20240202
  Receipt Date: 20240202
  Transmission Date: 20240410
  Serious: Yes (Other)
  Sender: FDA-Public Use
  Company Number: SK-MEDO2008-000176

PATIENT
  Sex: Male

DRUGS (3)
  1. PRAMIPEXOLE [Suspect]
     Active Substance: PRAMIPEXOLE\PRAMIPEXOLE DIHYDROCHLORIDE
     Indication: Parkinson^s disease
  2. LEVODOPA [Suspect]
     Active Substance: LEVODOPA
     Indication: Parkinson^s disease
  3. AMANTADINE [Suspect]
     Active Substance: AMANTADINE
     Indication: Dyskinesia

REACTIONS (2)
  - Therapeutic response shortened [Unknown]
  - Parkinson^s disease [Unknown]
